FAERS Safety Report 20620911 (Version 2)
Quarter: 2022Q2

REPORT INFORMATION
  Report Type: Spontaneous
  Country: US (occurrence: US)
  Receive Date: 20220322
  Receipt Date: 20220413
  Transmission Date: 20220721
  Serious: No
  Sender: FDA-Public Use
  Company Number: US-Calliditas-2022CAL00002

PATIENT
  Age: 43 Year
  Sex: Male

DRUGS (1)
  1. TARPEYO [Suspect]
     Active Substance: BUDESONIDE
     Indication: Proteinuria
     Dosage: 16 MG ONCE DAILY
     Dates: start: 20220129

REACTIONS (2)
  - Joint swelling [Unknown]
  - Energy increased [Unknown]
